FAERS Safety Report 4630503-6 (Version None)
Quarter: 2005Q2

REPORT INFORMATION
  Report Type: 
  Country: None (occurrence: None)
  Receive Date: 20050406
  Receipt Date: 20050317
  Transmission Date: 20051028
  Serious: Yes (Death, Hospitalization, Other)
  Sender: FDA-Public Use
  Company Number: USA050393486

PATIENT
  Age: 60 Year
  Sex: Female

DRUGS (7)
  1. GEMZAR [Suspect]
     Indication: NON-SMALL CELL LUNG CANCER
     Dosage: 900 MG
     Dates: start: 20040223, end: 20040412
  2. CARBOPLATIN [Concomitant]
  3. AMBIEN [Concomitant]
  4. QUININE SULFATE [Concomitant]
  5. COMPAZINE [Concomitant]
  6. ALBUTEROL [Concomitant]
  7. PAIM MEDS [Concomitant]

REACTIONS (5)
  - ASTHENIA [None]
  - CONFUSIONAL STATE [None]
  - FALL [None]
  - HEPATIC NECROSIS [None]
  - VISION BLURRED [None]
